FAERS Safety Report 7450665-5 (Version None)
Quarter: 2011Q2

REPORT INFORMATION
  Report Type: 
  Country: None (occurrence: None)
  Receive Date: 20110429
  Receipt Date: 20110429
  Transmission Date: 20111010
  Serious: No
  Sender: FDA-Public Use
  Company Number: None

PATIENT
  Age: 79 Year
  Sex: Female
  Weight: 63.5036 kg

DRUGS (3)
  1. DOXYCYCLINE MONOHYDRATE [Suspect]
     Indication: DRY EYE
     Dosage: 50 MG ONCE DAILY
     Dates: start: 20110406
  2. DOXYCYCLINE MONOHYDRATE [Suspect]
     Indication: DRY EYE
     Dosage: 50 MG ONCE DAILY
     Dates: start: 20110407
  3. DOXYCYCLINE MONOHYDRATE [Suspect]
     Indication: DRY EYE
     Dosage: 50 MG ONCE DAILY
     Dates: start: 20110405

REACTIONS (1)
  - ABDOMINAL PAIN UPPER [None]
